FAERS Safety Report 4919978-2 (Version None)
Quarter: 2006Q1

REPORT INFORMATION
  Report Type: 
  Country: None (occurrence: None)
  Receive Date: 20060216
  Receipt Date: 20060201
  Transmission Date: 20060701
  Serious: Yes (Hospitalization)
  Sender: FDA-Public Use
  Company Number: CIP05002740

PATIENT
  Age: 53 Year
  Sex: Female

DRUGS (11)
  1. ACTONEL [Suspect]
     Indication: OSTEOPOROSIS
     Dosage: 2.5 MG DAILY, ORAL
     Route: 048
     Dates: end: 20050909
  2. RISEDRONATE SODIUM [Suspect]
     Indication: OSTEOPOROSIS
     Dosage: 2.5 MG DAILY, ORAL
     Route: 048
     Dates: start: 20050910, end: 20051004
  3. FAMOTIDINE [Suspect]
  4. VIT K CAP [Suspect]
     Indication: OSTEOPOROSIS
     Dosage: 45 MG DAILY, ORAL
     Route: 048
     Dates: end: 20051004
  5. FAMOTIDINE [Suspect]
     Indication: PROPHYLAXIS AGAINST GASTROINTESTINAL ULCER
     Dosage: 20 MG, DAILY, ORAL
     Route: 048
     Dates: end: 20051004
  6. LENDORM [Suspect]
     Indication: INSOMNIA
     Dosage: SEE IMAGE
     Route: 048
     Dates: start: 20050801, end: 20051113
  7. BROTIZOLAM (BROTIZOLAM) [Suspect]
     Indication: INSOMNIA
     Dosage: 0.25 MG, ORAL
     Route: 048
     Dates: end: 20050909
  8. EBRANTIL (URAPIDIL) [Suspect]
     Indication: NEUROGENIC BLADDER
     Dosage: 30 MG, ORAL
     Route: 048
     Dates: end: 20051004
  9. CHOLESTEROL - AND TRIGLYCERIDE REDUCERS () [Suspect]
     Indication: HYPERCHOLESTEROLAEMIA
     Dosage: 1 MG, DAILY,
     Dates: start: 20050910, end: 20051004
  10. ASPIRIN [Suspect]
     Indication: ANGINA PECTORIS
     Dosage: 100 MG, ORAL
     Route: 048
     Dates: start: 20050914, end: 20051004
  11. MAGNESIUM OXIDE (MAGNESIUM OXIDE) [Concomitant]

REACTIONS (23)
  - ALANINE AMINOTRANSFERASE INCREASED [None]
  - ANOREXIA [None]
  - ASPARTATE AMINOTRANSFERASE INCREASED [None]
  - BASOPHIL COUNT INCREASED [None]
  - BASOPHIL PERCENTAGE INCREASED [None]
  - BLOOD ALBUMIN DECREASED [None]
  - BLOOD ALKALINE PHOSPHATASE INCREASED [None]
  - BLOOD BILIRUBIN INCREASED [None]
  - BLOOD LACTATE DEHYDROGENASE INCREASED [None]
  - BLOOD UREA DECREASED [None]
  - CONDITION AGGRAVATED [None]
  - EOSINOPHIL COUNT INCREASED [None]
  - EOSINOPHIL PERCENTAGE INCREASED [None]
  - HAEMOGLOBIN DECREASED [None]
  - LIVER DISORDER [None]
  - LYMPHOCYTE COUNT INCREASED [None]
  - LYMPHOCYTE PERCENTAGE INCREASED [None]
  - MONOCYTE COUNT INCREASED [None]
  - MONOCYTE PERCENTAGE INCREASED [None]
  - NEUTROPHIL COUNT DECREASED [None]
  - NEUTROPHIL PERCENTAGE DECREASED [None]
  - RED BLOOD CELL COUNT DECREASED [None]
  - RED CELL DISTRIBUTION WIDTH INCREASED [None]
